FAERS Safety Report 24900914 (Version 4)
Quarter: 2025Q3

REPORT INFORMATION
  Report Type: Report from Study
  Country: EU (occurrence: EU)
  Receive Date: 20250129
  Receipt Date: 20250818
  Transmission Date: 20251021
  Serious: No
  Sender: SANDOZ
  Company Number: EU-SANDOZ-SDZ2024FR090689

PATIENT
  Age: 13 Year
  Sex: Male

DRUGS (1)
  1. OMNITROPE [Suspect]
     Active Substance: SOMATROPIN
     Indication: Product used for unknown indication
     Route: 058
     Dates: start: 20241023

REACTIONS (2)
  - Circumstance or information capable of leading to medication error [Unknown]
  - Incorrect dose administered by device [Unknown]
